FAERS Safety Report 12170991 (Version 1)
Quarter: 2016Q1

REPORT INFORMATION
  Report Type: Spontaneous
  Country: US (occurrence: None)
  Receive Date: 20160310
  Receipt Date: 20160310
  Transmission Date: 20160526
  Serious: No
  Sender: FDA-Public Use
  Company Number: None

PATIENT
  Age: 36 Year
  Sex: Male
  Weight: 77.11 kg

DRUGS (4)
  1. LEXAPRO 20MG - GENERIC [Suspect]
     Active Substance: ESCITALOPRAM OXALATE
     Indication: DEPRESSION
  2. APAP [Concomitant]
     Active Substance: ACETAMINOPHEN
  3. CELEXA [Suspect]
     Active Substance: CITALOPRAM HYDROBROMIDE
     Indication: DEPRESSION
  4. CETIRIZINE [Concomitant]
     Active Substance: CETIRIZINE HYDROCHLORIDE

REACTIONS (6)
  - Drug dependence [None]
  - Drug withdrawal syndrome [None]
  - Nausea [None]
  - Depression [None]
  - Decreased activity [None]
  - Dizziness [None]

NARRATIVE: CASE EVENT DATE: 20160308
